FAERS Safety Report 25512003 (Version 1)
Quarter: 2025Q3

REPORT INFORMATION
  Report Type: Spontaneous
  Country: US (occurrence: US)
  Receive Date: 20250703
  Receipt Date: 20250703
  Transmission Date: 20251020
  Serious: No
  Sender: RADIUS PHARM
  Company Number: US-RADIUS HEALTH INC.-2024US004823

PATIENT
  Age: 66 Year
  Sex: Female

DRUGS (2)
  1. TYMLOS [Suspect]
     Active Substance: ABALOPARATIDE
     Indication: Product used for unknown indication
     Dates: start: 202406
  2. ALGAE NOS [Concomitant]
     Indication: Product used for unknown indication

REACTIONS (14)
  - Migraine [Unknown]
  - Nausea [Unknown]
  - Tachycardia [Unknown]
  - Palpitations [Unknown]
  - Insomnia [Unknown]
  - Arthralgia [Unknown]
  - Dysstasia [Unknown]
  - Lethargy [Unknown]
  - Headache [Unknown]
  - Back pain [Recovered/Resolved]
  - Dizziness [Unknown]
  - Diarrhoea [Unknown]
  - Gait disturbance [Unknown]
  - Injection site pain [Unknown]

NARRATIVE: CASE EVENT DATE: 20240601
